FAERS Safety Report 4843365-9 (Version None)
Quarter: 2005Q4

REPORT INFORMATION
  Report Type: 
  Country: None (occurrence: None)
  Receive Date: 20051201
  Receipt Date: 20051123
  Transmission Date: 20060501
  Serious: Yes (Hospitalization)
  Sender: FDA-Public Use
  Company Number: US-MERCK-0511USA04196

PATIENT
  Age: 61 Year
  Sex: Female
  Weight: 55 kg

DRUGS (18)
  1. VIOXX [Suspect]
     Indication: OSTEOARTHRITIS
     Route: 048
     Dates: start: 20010314, end: 20030904
  2. MEDROXYPROGESTERONE ACETATE [Concomitant]
     Route: 065
  3. PREMARIN [Concomitant]
     Route: 065
  4. HYDROXYZINE HYDROCHLORIDE [Concomitant]
     Route: 065
  5. WELLBUTRIN [Concomitant]
     Route: 065
  6. ACETAMINOPHEN [Concomitant]
     Route: 065
  7. ZITHROMAX [Concomitant]
     Route: 065
  8. SINGULAIR [Concomitant]
     Route: 065
  9. FLEXERIL [Concomitant]
     Route: 065
  10. PAXIL [Concomitant]
     Route: 065
  11. LIPITOR [Concomitant]
     Route: 065
  12. FOLIC ACID [Concomitant]
     Route: 065
  13. [THERAPY UNSPECIFIED] [Concomitant]
     Route: 065
  14. METOCLOPRAMIDE [Concomitant]
     Route: 065
  15. CLONIDINE [Concomitant]
     Route: 065
  16. LISINOPRIL [Concomitant]
     Route: 065
  17. METOPROLOL [Concomitant]
     Route: 065
  18. ALBUTEROL [Concomitant]
     Route: 065

REACTIONS (8)
  - ANGINA PECTORIS [None]
  - ARTERIOSPASM CORONARY [None]
  - ARTHROPATHY [None]
  - CARDIAC DISORDER [None]
  - CORONARY ARTERY DISEASE [None]
  - DEPRESSION [None]
  - HIP ARTHROPLASTY [None]
  - MYOCARDIAL INFARCTION [None]
